FAERS Safety Report 9133637 (Version 2)
Quarter: 2013Q1

REPORT INFORMATION
  Report Type: Spontaneous
  Country: US (occurrence: US)
  Receive Date: 20130301
  Receipt Date: 20130311
  Transmission Date: 20140127
  Serious: Yes (Hospitalization)
  Sender: FDA-Public Use
  Company Number: US-B.I. PHARMACEUTICALS,INC./RIDGEFIELD-2013-BI-05158BP

PATIENT
  Age: 84 Year
  Sex: Female

DRUGS (5)
  1. PRADAXA [Suspect]
  2. UBIQUINOL [Concomitant]
  3. PROTON PUMP INHIBITOR [Concomitant]
  4. TIKOSYN [Concomitant]
     Dosage: 500 MCG
  5. ROZEREM [Concomitant]

REACTIONS (1)
  - Gastrointestinal haemorrhage [Not Recovered/Not Resolved]
